FAERS Safety Report 6602398-2 (Version None)
Quarter: 2010Q1

REPORT INFORMATION
  Report Type: 
  Country: None (occurrence: None)
  Receive Date: 20100225
  Receipt Date: 20100215
  Transmission Date: 20100710
  Serious: Yes (Hospitalization)
  Sender: FDA-Public Use
  Company Number: B0633658A

PATIENT
  Age: 70 Year
  Sex: Male

DRUGS (15)
  1. ARIXTRA [Suspect]
     Indication: THROMBOSIS PROPHYLAXIS
     Dosage: 2.5MG PER DAY
     Route: 058
     Dates: start: 20090601, end: 20090701
  2. KARDEGIC [Suspect]
     Indication: DRUG USE FOR UNKNOWN INDICATION
     Dosage: 75MG PER DAY
     Route: 048
     Dates: end: 20090701
  3. ALLOPURINOL [Concomitant]
     Dosage: 200MG UNKNOWN
     Route: 048
  4. ACTISKENAN [Concomitant]
     Dosage: 5MG UNKNOWN
     Route: 048
  5. TRIATEC [Concomitant]
     Dosage: 10MG UNKNOWN
     Route: 048
  6. AMLOR [Concomitant]
     Dosage: 5MG UNKNOWN
     Route: 048
  7. CONTRAMAL [Concomitant]
     Dosage: 200MG UNKNOWN
     Route: 065
  8. EUPRESSYL [Concomitant]
     Dosage: 60MG UNKNOWN
     Route: 048
  9. FLUDEX [Concomitant]
     Dosage: 1.5MG UNKNOWN
     Route: 048
  10. GABAPENTIN [Concomitant]
     Route: 048
  11. HYPERIUM [Concomitant]
     Dosage: 1MG UNKNOWN
     Route: 048
  12. SKENAN [Concomitant]
     Dosage: 10MG UNKNOWN
     Route: 048
  13. STILNOX [Concomitant]
     Dosage: 10MG UNKNOWN
     Route: 048
  14. LOXEN [Concomitant]
     Dosage: 20MG UNKNOWN
     Route: 048
  15. FORLAX [Concomitant]
     Route: 065

REACTIONS (7)
  - ANAEMIA [None]
  - DEHYDRATION [None]
  - HAEMATOMA [None]
  - INDURATION [None]
  - JOINT SWELLING [None]
  - MELAENA [None]
  - RENAL FAILURE ACUTE [None]
